FAERS Safety Report 15843097 (Version 1)
Quarter: 2018Q4

REPORT INFORMATION
  Report Type: Spontaneous
  Country: US (occurrence: US)
  Receive Date: 20181226
  Receipt Date: 20181226
  Transmission Date: 20190205
  Serious: No
  Sender: FDA-Public Use
  Company Number: None

PATIENT
  Age: 66 Year
  Sex: Male

DRUGS (2)
  1. ABIRATERONE 250MG [Suspect]
     Active Substance: ABIRATERONE
     Dates: start: 201811
  2. PREDNISONE. [Concomitant]
     Active Substance: PREDNISONE

REACTIONS (2)
  - Hyperhidrosis [None]
  - Flushing [None]

NARRATIVE: CASE EVENT DATE: 20171109
